FAERS Safety Report 23793202 (Version 2)
Quarter: 2025Q2

REPORT INFORMATION
  Report Type: Spontaneous
  Country: AU (occurrence: US)
  Receive Date: 20240429
  Receipt Date: 20250502
  Transmission Date: 20250716
  Serious: Yes (Death, Hospitalization, Other)
  Sender: Kenvue
  Company Number: AU-JNJFOC-20240464800

PATIENT
  Age: 13 Year
  Sex: Male

DRUGS (1)
  1. BENADRYL [Suspect]
     Active Substance: DIPHENHYDRAMINE HYDROCHLORIDE
     Indication: Hallucination
     Route: 065

REACTIONS (4)
  - Coma [Fatal]
  - Seizure [Fatal]
  - Intentional product misuse [Fatal]
  - Intentional overdose [Fatal]
